FAERS Safety Report 10056126 (Version 3)
Quarter: 2014Q2

REPORT INFORMATION
  Report Type: Spontaneous
  Country: US (occurrence: US)
  Receive Date: 20140403
  Receipt Date: 20140630
  Transmission Date: 20141212
  Serious: Yes (Hospitalization)
  Sender: FDA-Public Use
  Company Number: US-009507513-1403USA009944

PATIENT
  Age: 64 Year
  Sex: Female

DRUGS (3)
  1. SINEMET CR [Suspect]
     Indication: PARKINSON^S DISEASE
     Dosage: 25/100 MG, 1/2 MORNING, 1/2 LUNCH, 1/2 DINNER, 1 BEDTIME
     Route: 048
     Dates: start: 20140213
  2. SINEMET [Suspect]
     Indication: PARKINSON^S DISEASE
     Dosage: 25/100 MG, QID
     Route: 048
  3. ESTROGENS (UNSPECIFIED) [Concomitant]
     Indication: MENOPAUSAL SYMPTOMS
     Dosage: UNK
     Dates: start: 1997

REACTIONS (33)
  - Dopamine dysregulation syndrome [Recovered/Resolved]
  - Confusional state [Recovered/Resolved]
  - Anxiety [Recovered/Resolved]
  - Therapeutic response delayed [Not Recovered/Not Resolved]
  - Dysphagia [Not Recovered/Not Resolved]
  - Overdose [Unknown]
  - Muscle spasms [Recovering/Resolving]
  - Myalgia [Recovering/Resolving]
  - Dehydration [Recovering/Resolving]
  - Myositis [Recovering/Resolving]
  - Parkinson^s disease [Recovering/Resolving]
  - Anxiety [Unknown]
  - Nephrolithiasis [Unknown]
  - Fibrocystic breast disease [Unknown]
  - Uterine leiomyoma [Unknown]
  - Gastrooesophageal reflux disease [Unknown]
  - Bone disorder [Unknown]
  - Chondropathy [Unknown]
  - Rhinitis allergic [Unknown]
  - Neuropathy peripheral [Unknown]
  - Eye disorder [Unknown]
  - Muscle spasms [Unknown]
  - Constipation [Unknown]
  - Gastrointestinal disorder [Unknown]
  - Staphylococcal infection [Unknown]
  - Procedural nausea [Unknown]
  - Procedural vomiting [Unknown]
  - Functional gastrointestinal disorder [Unknown]
  - Coagulopathy [Unknown]
  - Transient ischaemic attack [Unknown]
  - Breast operation [Unknown]
  - Tonsillectomy [Unknown]
  - Arthralgia [Unknown]
